FAERS Safety Report 9931433 (Version 1)
Quarter: 2014Q1

REPORT INFORMATION
  Report Type: Report from Study
  Country: IL (occurrence: IL)
  Receive Date: 20140228
  Receipt Date: 20140228
  Transmission Date: 20141002
  Serious: Yes (Other)
  Sender: FDA-Public Use
  Company Number: IL-ROCHE-1351761

PATIENT
  Sex: 0

DRUGS (1)
  1. BEVACIZUMAB [Suspect]
     Indication: CORNEAL NEOVASCULARISATION
     Dosage: 1.25 MG/0.5 ML
     Route: 061

REACTIONS (2)
  - Chalazion [Recovered/Resolved]
  - Off label use [Unknown]
